FAERS Safety Report 15418389 (Version 1)
Quarter: 2018Q3

REPORT INFORMATION
  Report Type: Spontaneous
  Country: None (occurrence: None)
  Receive Date: 20180924
  Receipt Date: 20180924
  Transmission Date: 20181010
  Serious: Yes (Other)
  Sender: FDA-Public Use
  Company Number: TELIGENT, INC-IGIL20180529

PATIENT
  Sex: Male

DRUGS (1)
  1. CEFOTETAN DISODIUM [Suspect]
     Active Substance: CEFOTETAN DISODIUM
     Indication: PRODUCT USED FOR UNKNOWN INDICATION
     Dosage: UNKNOWN
     Route: 064

REACTIONS (1)
  - Bradycardia foetal [Recovered/Resolved]
